FAERS Safety Report 5857332-X (Version None)
Quarter: 2008Q3

REPORT INFORMATION
  Report Type: 
  Country: None (occurrence: None)
  Receive Date: 20080826
  Receipt Date: 20080815
  Transmission Date: 20090109
  Serious: Yes (Other)
  Sender: FDA-Public Use
  Company Number: US-JNJFOC-20080804018

PATIENT
  Sex: Male
  Weight: 67.13 kg

DRUGS (3)
  1. REMICADE [Suspect]
     Indication: PSORIATIC ARTHROPATHY
     Route: 042
  2. METHOTREXATE SODIUM [Concomitant]
  3. SULINDAC [Concomitant]

REACTIONS (1)
  - LYMPH NODE TUBERCULOSIS [None]
